FAERS Safety Report 6272092-9 (Version None)
Quarter: 2009Q3

REPORT INFORMATION
  Report Type: 
  Country: None (occurrence: None)
  Receive Date: 20090717
  Receipt Date: 20090709
  Transmission Date: 20100115
  Serious: Yes (Hospitalization)
  Sender: FDA-Public Use
  Company Number: B0577691A

PATIENT
  Sex: Male
  Weight: 37 kg

DRUGS (4)
  1. RELENZA [Suspect]
     Indication: INFLUENZA
     Route: 055
     Dates: start: 20090101
  2. RELENZA [Suspect]
     Dosage: 10MG PER DAY
     Route: 055
     Dates: start: 20090601, end: 20090601
  3. UNKNOWN DRUG [Concomitant]
     Route: 042
     Dates: start: 20090601, end: 20090605
  4. PENTCILLIN [Concomitant]
     Indication: INFECTION PROPHYLAXIS
     Dosage: 3G PER DAY
     Route: 042
     Dates: start: 20090601, end: 20090604

REACTIONS (5)
  - ABNORMAL BEHAVIOUR [None]
  - BETA 2 MICROGLOBULIN URINE INCREASED [None]
  - C-REACTIVE PROTEIN INCREASED [None]
  - DELIRIUM FEBRILE [None]
  - ELECTROENCEPHALOGRAM ABNORMAL [None]
